FAERS Safety Report 5871509-9 (Version None)
Quarter: 2008Q3

REPORT INFORMATION
  Report Type: 
  Country: None (occurrence: None)
  Receive Date: 20080905
  Receipt Date: 20080321
  Transmission Date: 20090109
  Serious: No
  Sender: FDA-Public Use
  Company Number: A0714336A

PATIENT
  Age: 83 Year
  Sex: Female
  Weight: 63.6 kg

DRUGS (7)
  1. REQUIP [Suspect]
     Indication: RESTLESS LEGS SYNDROME
     Dosage: 1MG PER DAY
     Route: 048
     Dates: start: 20071001, end: 20071001
  2. CLONAZEPAM [Suspect]
     Indication: RESTLESS LEGS SYNDROME
     Dosage: 1MG PER DAY
     Route: 048
  3. POTASSIUM CHLORIDE [Concomitant]
     Route: 048
  4. HYDROCHLOROTHIAZIDE [Concomitant]
     Route: 048
  5. FENTANIL [Concomitant]
  6. LORTAB [Concomitant]
     Route: 048
  7. HYOSCYAMINE SULFATE [Concomitant]
     Route: 048

REACTIONS (5)
  - DRUG INTERACTION [None]
  - MEMORY IMPAIRMENT [None]
  - PERSONALITY CHANGE [None]
  - SEDATION [None]
  - SOMNOLENCE [None]
